FAERS Safety Report 19964088 (Version 1)
Quarter: 2021Q4

REPORT INFORMATION
  Report Type: Spontaneous
  Country: US (occurrence: US)
  Receive Date: 20211018
  Receipt Date: 20211018
  Transmission Date: 20220303
  Serious: Yes (Hospitalization, Other)
  Sender: FDA-Public Use
  Company Number: US-ORG100016242-2021000547

PATIENT

DRUGS (5)
  1. EXPAREL [Suspect]
     Active Substance: BUPIVACAINE
     Dosage: MIXTURE OF 15 ML 0.25% BUPIVACAINE AND 10 ML LIPOSOMAL BUPIVACAINE PER SIDE
     Route: 050
  2. BUPIVACAINE [Suspect]
     Active Substance: BUPIVACAINE
     Dosage: MIXTURE OF 15 ML 0.25% BUPIVACAINE AND 10 ML LIPOSOMAL BUPIVACAINE PER SIDE
     Route: 050
  3. KETOROLAC [Concomitant]
     Active Substance: KETOROLAC TROMETHAMINE
     Dosage: INITIAL 24 H POSTOPERATIVE
     Route: 065
  4. IBUPROFEN [Concomitant]
     Active Substance: IBUPROFEN
     Dosage: AFTER 24 H POSTOPERATIVE
     Route: 065
  5. ACETAMINOPHEN [Concomitant]
     Active Substance: ACETAMINOPHEN
     Dosage: UNLESS OTHERWISE CONTRAINDICATED
     Route: 065

REACTIONS (4)
  - Hospitalisation [Unknown]
  - Ileus [Unknown]
  - Urinary retention [Unknown]
  - Hypotension [Unknown]
